FAERS Safety Report 12173002 (Version 5)
Quarter: 2016Q2

REPORT INFORMATION
  Report Type: Spontaneous
  Country: BR (occurrence: BR)
  Receive Date: 20160311
  Receipt Date: 20160505
  Transmission Date: 20160815
  Serious: Yes (Other)
  Sender: FDA-Public Use
  Company Number: BR-PFIZER INC-2016145205

PATIENT
  Age: 59 Year
  Sex: Female
  Weight: 78 kg

DRUGS (8)
  1. RIVOTRIL [Concomitant]
     Active Substance: CLONAZEPAM
     Indication: ANXIETY
     Dosage: EVERY NIGHT; SOMETIME TABLET AND SOMETIMES DROPS (TAKES ABOUT 12 TO 15 DROPS)
  2. GLIFAGE [Concomitant]
     Active Substance: METFORMIN HYDROCHLORIDE
     Indication: DIABETES PROPHYLAXIS
     Dosage: 500 MG, 1 IN THE MORNING AND 1 AT NIGHT
  3. OMEPRAZOLE. [Concomitant]
     Active Substance: OMEPRAZOLE
     Dosage: 40 MG, 1 IN THE MORNING
  4. ATENOLOL. [Concomitant]
     Active Substance: ATENOLOL
     Dosage: 25 MG, 1 IN THE MORNING AND 1 AT NIGHT
  5. SIMVASTATIN. [Concomitant]
     Active Substance: SIMVASTATIN
     Dosage: 20 MG 3X/WEEK
  6. HYDROCHLOROTHIAZIDE. [Concomitant]
     Active Substance: HYDROCHLOROTHIAZIDE
     Dosage: 25 MG, 1 IN THE MORNING
     Dates: start: 2012
  7. SIMVASTATIN. [Concomitant]
     Active Substance: SIMVASTATIN
     Dosage: ^25^, 3X/WEEK
  8. TALIGLUCERASE ALFA [Suspect]
     Active Substance: TALIGLUCERASE ALFA
     Indication: GAUCHER^S DISEASE
     Dosage: 12 FLASKS EVERY 15 DAYS (^14 IN 15 DAYS^)
     Dates: start: 2010

REACTIONS (16)
  - Weight increased [Not Recovered/Not Resolved]
  - Portal hypertension [Unknown]
  - Portal fibrosis [Unknown]
  - Hepatic fibrosis [Unknown]
  - Splenic fibrosis [Unknown]
  - Phlebosclerosis [Unknown]
  - Crystal urine present [Unknown]
  - Feeling abnormal [Unknown]
  - Blood glucose abnormal [Recovering/Resolving]
  - Arrhythmia [Unknown]
  - Spinal pain [Unknown]
  - Tendonitis [Not Recovered/Not Resolved]
  - Drug dose omission [Unknown]
  - Cardiovascular disorder [Unknown]
  - Cystitis [Unknown]
  - Intervertebral disc protrusion [Not Recovered/Not Resolved]

NARRATIVE: CASE EVENT DATE: 2014
